FAERS Safety Report 16043040 (Version 2)
Quarter: 2019Q2

REPORT INFORMATION
  Report Type: Spontaneous
  Country: AU (occurrence: AU)
  Receive Date: 20190306
  Receipt Date: 20190514
  Transmission Date: 20190711
  Serious: Yes (Hospitalization, Other)
  Sender: FDA-Public Use
  Company Number: AU-SA-2019SA055178

PATIENT
  Age: 67 Year
  Sex: Male

DRUGS (3)
  1. INSULIN LISPRO [Suspect]
     Active Substance: INSULIN LISPRO
     Dosage: 10 U, TID,10 UNITS TDS WITH MEALS
     Route: 065
  2. LANTUS [Suspect]
     Active Substance: INSULIN GLARGINE
     Dosage: 30 U
     Route: 065
  3. METFORMIN HYDROCHLORIDE. [Suspect]
     Active Substance: METFORMIN HYDROCHLORIDE
     Dosage: 2 G, QD AT NIGHT
     Route: 065

REACTIONS (6)
  - Glycosylated haemoglobin increased [Unknown]
  - Insulinoma [Unknown]
  - Fluid retention [Unknown]
  - Hypoglycaemia [Recovered/Resolved]
  - Body mass index increased [Unknown]
  - Weight decreased [Unknown]
